FAERS Safety Report 17802228 (Version 5)
Quarter: 2021Q3

REPORT INFORMATION
  Report Type: Spontaneous
  Country: US (occurrence: US)
  Receive Date: 20200519
  Receipt Date: 20210810
  Transmission Date: 20211014
  Serious: No
  Sender: FDA-Public Use
  Company Number: US-PFIZER INC-2020113005

PATIENT
  Age: 57 Year
  Sex: Female

DRUGS (2)
  1. XELJANZ XR [Suspect]
     Active Substance: TOFACITINIB CITRATE
     Indication: RHEUMATOID ARTHRITIS
     Dosage: 11 MG, DAILY
     Route: 048
     Dates: start: 202001
  2. METHOTREXATE. [Concomitant]
     Active Substance: METHOTREXATE
     Dosage: UNK

REACTIONS (6)
  - Muscle spasms [Unknown]
  - Depressed mood [Unknown]
  - Musculoskeletal stiffness [Unknown]
  - Discouragement [Unknown]
  - Myalgia [Unknown]
  - Mood disorder due to a general medical condition [Unknown]

NARRATIVE: CASE EVENT DATE: 2020
